FAERS Safety Report 9892508 (Version 1)
Quarter: 2014Q1

REPORT INFORMATION
  Report Type: Spontaneous
  Country: US (occurrence: US)
  Receive Date: 20140212
  Receipt Date: 20140212
  Transmission Date: 20141002
  Serious: No
  Sender: FDA-Public Use
  Company Number: US-BAXTER-2014BAX006369

PATIENT
  Age: 91 Year
  Sex: Male

DRUGS (1)
  1. SODIUM CHLORIDE_SODIUM CHLORIDE 0.90 %_SOLUTION FOR INFUSION_BAG, NON [Suspect]
     Indication: PRODUCT USED FOR UNKNOWN INDICATION
     Route: 042

REACTIONS (1)
  - Hypotension [Recovered/Resolved]
